FAERS Safety Report 9248539 (Version 5)
Quarter: 2013Q3

REPORT INFORMATION
  Report Type: Report from Study
  Country: US (occurrence: US)
  Receive Date: 20130423
  Receipt Date: 20130723
  Transmission Date: 20140515
  Serious: Yes (Hospitalization)
  Sender: FDA-Public Use
  Company Number: US-CELGENEUS-163-POMAL-13042608

PATIENT
  Age: 65 Year
  Sex: Male
  Weight: 93 kg

DRUGS (16)
  1. POMALYST [Suspect]
     Indication: PLASMA CELL MYELOMA
     Route: 048
     Dates: start: 201301
  2. POMALYST [Suspect]
     Dosage: 4 MILLIGRAM
     Route: 048
     Dates: start: 20130403, end: 20130409
  3. CARFILZOMIB [Suspect]
     Indication: PLASMA CELL MYELOMA
     Route: 041
     Dates: start: 20130108
  4. CARFILZOMIB [Suspect]
     Route: 041
     Dates: start: 20130403, end: 20130404
  5. DEXAMETHASONE [Suspect]
     Indication: PLASMA CELL MYELOMA
     Route: 065
     Dates: start: 201301
  6. ECOTRIN [Concomitant]
     Indication: ANTICOAGULANT THERAPY
     Route: 065
     Dates: start: 20100924
  7. ZOMETA [Concomitant]
     Indication: OSTEOPOROSIS
     Route: 065
     Dates: start: 20100924
  8. ALBUTEROL [Concomitant]
     Indication: WHEEZING
     Route: 065
     Dates: start: 20130224
  9. ALBUTEROL [Concomitant]
     Route: 065
     Dates: start: 20130318
  10. AMLODIPINE BESYLATE [Concomitant]
     Indication: ESSENTIAL HYPERTENSION
     Route: 065
     Dates: start: 20130224
  11. ZEBETA [Concomitant]
     Indication: HYPERTENSION
     Route: 065
     Dates: start: 20130205
  12. CALCIUM VITAMIN D [Concomitant]
     Indication: PROPHYLAXIS
     Route: 065
     Dates: start: 20120616
  13. ADVAIR DISKUS [Concomitant]
     Indication: BRONCHIAL HYPERREACTIVITY
     Route: 065
     Dates: start: 20111205
  14. HUMAN IMMUNOGLOBULIN [Concomitant]
     Indication: PARESIS
     Route: 065
     Dates: start: 20111215
  15. VALACYCLOVIR HCL [Concomitant]
     Indication: ANTIVIRAL PROPHYLAXIS
     Route: 065
     Dates: start: 20120129
  16. OMEPRAZOLE [Concomitant]
     Indication: BARRETT^S OESOPHAGUS
     Route: 065
     Dates: start: 20120913

REACTIONS (1)
  - Hypoxia [Recovered/Resolved]
